APPROVED DRUG PRODUCT: BYDUREON BCISE
Active Ingredient: EXENATIDE SYNTHETIC
Strength: 2MG/0.85ML (2MG/0.85ML)
Dosage Form/Route: SUSPENSION, EXTENDED RELEASE;SUBCUTANEOUS
Application: N209210 | Product #001
Applicant: ASTRAZENECA AB
Approved: Oct 20, 2017 | RLD: Yes | RS: No | Type: DISCN

PATENTS:
Patent 8501698 | Expires: Jun 20, 2027
Patent 6515117 | Expires: Oct 4, 2025
Patent 8361972 | Expires: Mar 21, 2028
Patent 8329648 | Expires: Aug 18, 2026
Patent 8329648 | Expires: Aug 18, 2026
Patent 8329648 | Expires: Aug 18, 2026
Patent 8329648 | Expires: Aug 18, 2026
Patent 8329648 | Expires: Aug 18, 2026
Patent 8329648 | Expires: Aug 18, 2026
Patent 8329648 | Expires: Aug 18, 2026
Patent 8906851 | Expires: Aug 18, 2026
Patent 8906851 | Expires: Aug 18, 2026
Patent 8906851 | Expires: Aug 18, 2026
Patent 8906851 | Expires: Aug 18, 2026
Patent 9884092 | Expires: Aug 18, 2026
Patent 9884092 | Expires: Aug 18, 2026
Patent 9884092 | Expires: Aug 18, 2026
Patent 9884092 | Expires: Aug 18, 2026
Patent 9884092 | Expires: Aug 18, 2026
Patent 9884092 | Expires: Aug 18, 2026
Patent 9884092 | Expires: Aug 18, 2026
Patent 8895033 | Expires: Oct 4, 2030
Patent 8895033 | Expires: Oct 4, 2030
Patent 8895033 | Expires: Oct 4, 2030
Patent 8895033 | Expires: Oct 4, 2030
Patent 8895033 | Expires: Oct 4, 2030
Patent 8329648 | Expires: Aug 18, 2026
Patent 8329648 | Expires: Aug 18, 2026
Patent 8329648 | Expires: Aug 18, 2026
Patent 8895033 | Expires: Oct 4, 2030
Patent 8895033 | Expires: Oct 4, 2030
Patent 8895033 | Expires: Oct 4, 2030
Patent 8906851 | Expires: Aug 18, 2026
Patent 8906851 | Expires: Aug 18, 2026
Patent 8906851 | Expires: Aug 18, 2026
Patent 8906851 | Expires: Aug 18, 2026
Patent 9884092 | Expires: Aug 18, 2026
Patent 9884092 | Expires: Aug 18, 2026
Patent 9884092 | Expires: Aug 18, 2026
Patent 9884092 | Expires: Aug 18, 2026
Patent 8906851*PED | Expires: Feb 18, 2027
Patent 8329648*PED | Expires: Feb 18, 2027
Patent 8895033*PED | Expires: Apr 4, 2031
Patent 9884092*PED | Expires: Feb 18, 2027
Patent 8501698*PED | Expires: Dec 20, 2027
Patent 6515117*PED | Expires: Apr 4, 2026
Patent 8361972*PED | Expires: Sep 21, 2028